FAERS Safety Report 8092371-2 (Version None)
Quarter: 2012Q1

REPORT INFORMATION
  Report Type: 
  Country: None (occurrence: None)
  Receive Date: 20120128
  Receipt Date: 20110825
  Transmission Date: 20120608
  Serious: No
  Sender: FDA-Public Use
  Company Number: US-ABBOTT-11P-163-0849102-00

PATIENT
  Sex: Male

DRUGS (2)
  1. ZOCOR [Concomitant]
     Indication: PRODUCT USED FOR UNKNOWN INDICATION
  2. HUMIRA [Suspect]
     Indication: RHEUMATOID ARTHRITIS
     Dates: start: 20110401

REACTIONS (3)
  - BODY TEMPERATURE INCREASED [None]
  - DRUG INEFFECTIVE [None]
  - PAIN [None]
